FAERS Safety Report 15027279 (Version 1)
Quarter: 2018Q2

REPORT INFORMATION
  Report Type: Spontaneous
  Country: DE (occurrence: DE)
  Receive Date: 20180619
  Receipt Date: 20180619
  Transmission Date: 20180711
  Serious: Yes (Hospitalization)
  Sender: FDA-Public Use
  Company Number: DE-TEVA-2018-DE-908669

PATIENT
  Age: 67 Year
  Sex: Male
  Weight: 60 kg

DRUGS (11)
  1. BISOPROLOL/HYDROCHLOROTHIAZID [Concomitant]
     Dosage: 5|12.5 MG, 0.5-0-0-0,
     Route: 048
  2. SIMVASTATIN. [Concomitant]
     Active Substance: SIMVASTATIN
     Dosage: 20 MG, 0-0-0.5-0,
     Route: 048
  3. CANDECOR 32MG [Concomitant]
     Dosage: 32 MG, 0,5-0-0-0,
     Route: 048
  4. MITOMYCIN C [Suspect]
     Active Substance: MITOMYCIN
     Dosage: 17.9 MILLIGRAM DAILY; SCHEME
     Route: 042
  5. LOPERAMID [Concomitant]
     Active Substance: LOPERAMIDE
     Dosage: 2 MG, 2-0-2-0, CAPSULES
     Route: 048
  6. METFORMIN [Concomitant]
     Active Substance: METFORMIN HYDROCHLORIDE
     Dosage: 2000 MILLIGRAM DAILY;
     Route: 048
  7. ALLOPURINOL. [Concomitant]
     Active Substance: ALLOPURINOL
     Dosage: 300 MILLIGRAM DAILY; , 1-0-0-0
     Route: 048
  8. PANTOZOL [Concomitant]
     Active Substance: PANTOPRAZOLE SODIUM
     Dosage: 40 MILLIGRAM DAILY;  1-0-0-0,
     Route: 048
  9. 5-FU [Suspect]
     Active Substance: FLUOROURACIL
     Dosage: 1790 MILLIGRAM DAILY; SCHEME
     Route: 042
  10. NOVALGIN [Concomitant]
     Dosage: 500 MG, NEED, TABLETS
     Route: 048
  11. SEVREDOL 10MG [Concomitant]
     Dosage: 10 MG, SCHEMA
     Route: 048

REACTIONS (8)
  - Fatigue [Unknown]
  - Dyspnoea [Unknown]
  - Dysuria [Unknown]
  - Decreased appetite [Unknown]
  - Night sweats [Unknown]
  - Hypertension [Unknown]
  - General physical health deterioration [Unknown]
  - Cough [Unknown]
